FAERS Safety Report 4960326-X (Version None)
Quarter: 2006Q1

REPORT INFORMATION
  Report Type: 
  Country: None (occurrence: None)
  Receive Date: 20060328
  Receipt Date: 20060316
  Transmission Date: 20060701
  Serious: Yes (Disabling)
  Sender: FDA-Public Use
  Company Number: HQWYE371117MAR06

PATIENT
  Sex: Female

DRUGS (21)
  1. PANTOPRAZOLE SODIUM [Suspect]
     Dosage: 40 MG 1X PER 1 DAY; ORAL
     Route: 048
  2. TOPAMAX [Suspect]
     Indication: MIGRAINE
     Dosage: (SEE IMAGE)
     Route: 048
     Dates: start: 20000101, end: 20000101
  3. TOPAMAX [Suspect]
     Indication: MIGRAINE
     Dosage: (SEE IMAGE)
     Route: 048
     Dates: start: 20000801, end: 20000101
  4. TOPAMAX [Suspect]
     Indication: MIGRAINE
     Dosage: (SEE IMAGE)
     Route: 048
     Dates: start: 20000101
  5. FLONASE [Concomitant]
  6. CLONAZEPAM [Concomitant]
  7. NEDOCROMIL (NEDOCROMIL) [Concomitant]
  8. HYDROXYZINE [Concomitant]
  9. CODEINE [Concomitant]
  10. CAFFEINE [Concomitant]
  11. ACETAMINOPHEN [Concomitant]
  12. DIMENHYDRINATE [Concomitant]
  13. GABAPENTIN [Concomitant]
  14. PREDNISONE [Concomitant]
  15. SIBELIUM (FLUNARIZINE DIHYDROCHLORIDE) [Concomitant]
  16. TERFENADINE [Concomitant]
  17. VERAPAMIL [Concomitant]
  18. CELEBREX [Concomitant]
  19. SERAX [Concomitant]
  20. L-THYROXIN(LEVOTHYROXIN SODIUM) [Concomitant]
  21. PROPOXYPHENE HCL [Concomitant]

REACTIONS (17)
  - ASTHENIA [None]
  - BLADDER DISORDER [None]
  - COGNITIVE DISORDER [None]
  - COMMUNICATION DISORDER [None]
  - DISTURBANCE IN ATTENTION [None]
  - DYSPHEMIA [None]
  - FATIGUE [None]
  - GASTROINTESTINAL DISORDER [None]
  - HEADACHE [None]
  - IMPAIRED WORK ABILITY [None]
  - IRRITABILITY [None]
  - MEMORY IMPAIRMENT [None]
  - MOOD ALTERED [None]
  - NONSPECIFIC REACTION [None]
  - PHOTOPSIA [None]
  - RESTLESS LEGS SYNDROME [None]
  - SPEECH DISORDER [None]
